FAERS Safety Report 5838411-X (Version None)
Quarter: 2008Q3

REPORT INFORMATION
  Report Type: 
  Country: None (occurrence: None)
  Receive Date: 20080808
  Receipt Date: 20080729
  Transmission Date: 20090109
  Serious: Yes (Other)
  Sender: FDA-Public Use
  Company Number: PHHY2008FR15854

PATIENT
  Age: 74 Year
  Sex: Female

DRUGS (2)
  1. DESFERAL [Suspect]
     Indication: IRON OVERLOAD
     Dosage: 1 INJECTION EVERY 25 DAYS
  2. FRAXIPARINE [Concomitant]

REACTIONS (3)
  - DEAFNESS [None]
  - FEMUR FRACTURE [None]
  - LEUKOCYTOSIS [None]
